FAERS Safety Report 4316957-3 (Version None)
Quarter: 2004Q1

REPORT INFORMATION
  Report Type: 
  Country: None (occurrence: None)
  Receive Date: 20040312
  Receipt Date: 20040308
  Transmission Date: 20041129
  Serious: Yes (Other)
  Sender: FDA-Public Use
  Company Number: US-SHR-03-002931

PATIENT
  Age: 25 Year
  Sex: Female

DRUGS (2)
  1. YASMIN [Suspect]
     Indication: ORAL CONTRACEPTION
     Dosage: 1 TAB, 21D/28D, ORAL
     Route: 048
     Dates: start: 20020111, end: 20020608
  2. HALOG (HALCINONIDE) [Concomitant]

REACTIONS (1)
  - ALOPECIA UNIVERSALIS [None]
